FAERS Safety Report 4731099-0 (Version None)
Quarter: 2005Q3

REPORT INFORMATION
  Report Type: 
  Country: None (occurrence: None)
  Receive Date: 20050728
  Receipt Date: 20050505
  Transmission Date: 20060218
  Serious: No
  Sender: FDA-Public Use
  Company Number: ZICO001211

PATIENT
  Age: 35 Year
  Sex: Female

DRUGS (5)
  1. PRIALT [Suspect]
     Indication: PAIN
     Dosage: 2.4 MCG/DAY INTRATHECAL
     Route: 037
     Dates: start: 20050424, end: 20050101
  2. FENTANYL [Concomitant]
  3. DURAGESIC-100 [Concomitant]
  4. NEURONTIN [Concomitant]
  5. AMBIEN [Concomitant]

REACTIONS (1)
  - MUSCLE CONTRACTIONS INVOLUNTARY [None]
